FAERS Safety Report 24344114 (Version 2)
Quarter: 2024Q3

REPORT INFORMATION
  Report Type: Spontaneous
  Country: US (occurrence: US)
  Receive Date: 20240920
  Receipt Date: 20240920
  Transmission Date: 20241016
  Serious: No
  Sender: SANDOZ
  Company Number: US-SANDOZ-SDZ2024US081517

PATIENT
  Age: 39 Year
  Sex: Female

DRUGS (1)
  1. HYRIMOZ [Suspect]
     Active Substance: ADALIMUMAB-ADAZ
     Indication: Colitis ulcerative
     Dosage: 160 MG ON DAY 1 (TWO INJECTIONS OF 80MG/0.8ML EACH VIA PEN DEVICE)
     Route: 058
     Dates: start: 20240918

REACTIONS (4)
  - Dizziness [Recovering/Resolving]
  - Feeling hot [Recovering/Resolving]
  - Dysgeusia [Recovering/Resolving]
  - Injection site pain [Unknown]

NARRATIVE: CASE EVENT DATE: 20240918
